FAERS Safety Report 16233564 (Version 1)
Quarter: 2019Q2

REPORT INFORMATION
  Report Type: Spontaneous
  Country: US (occurrence: US)
  Receive Date: 20190423
  Receipt Date: 20190423
  Transmission Date: 20190711
  Serious: Yes (Other)
  Sender: FDA-Public Use
  Company Number: None

PATIENT
  Sex: Male
  Weight: 56 kg

DRUGS (12)
  1. TAFINLAR [Suspect]
     Active Substance: DABRAFENIB MESYLATE
     Indication: LUNG NEOPLASM MALIGNANT
     Route: 048
     Dates: start: 20190121, end: 20190423
  2. ELIQUIS [Concomitant]
     Active Substance: APIXABAN
  3. MEKINIST [Suspect]
     Active Substance: TRAMETINIB DIMETHYL SULFOXIDE
     Indication: LUNG NEOPLASM MALIGNANT
     Route: 048
     Dates: start: 20190121, end: 20190423
  4. METOPROLOL. [Concomitant]
     Active Substance: METOPROLOL
  5. DILTIAZEM. [Concomitant]
     Active Substance: DILTIAZEM
  6. SENNA [Concomitant]
     Active Substance: SENNA LEAF\SENNOSIDES\SENNOSIDES A AND B
  7. ASPIRIN. [Concomitant]
     Active Substance: ASPIRIN
  8. MELATONIN [Concomitant]
     Active Substance: MELATONIN
  9. VALSARTAN. [Concomitant]
     Active Substance: VALSARTAN
  10. VITAMIN B COMPLEX [Concomitant]
     Active Substance: CYANOCOBALAMIN\DEXPANTHENOL\NIACINAMIDE\PYRIDOXINE HYDROCHLORIDE\RIBOFLAVIN 5^-PHOSPHATE SODIUM\THIAMINE HYDROCHLORIDE\VITAMIN B COMPLEX
  11. TYLENOL [Concomitant]
     Active Substance: ACETAMINOPHEN
  12. CRESTOR [Concomitant]
     Active Substance: ROSUVASTATIN CALCIUM

REACTIONS (1)
  - Disease progression [None]
